FAERS Safety Report 6157920-X (Version None)
Quarter: 2009Q2

REPORT INFORMATION
  Report Type: 
  Country: None (occurrence: None)
  Receive Date: 20090417
  Receipt Date: 20090408
  Transmission Date: 20091009
  Serious: Yes (Life-Threatening, Hospitalization)
  Sender: FDA-Public Use
  Company Number: HK-SANOFI-SYNTHELABO-D01200602512

PATIENT
  Sex: Male
  Weight: 65 kg

DRUGS (2)
  1. ASPIRIN [Concomitant]
     Indication: ATRIAL FIBRILLATION
     Dosage: 80 MG
     Route: 048
     Dates: start: 20050813
  2. CLOPIDOGREL [Suspect]
     Indication: ATRIAL FIBRILLATION
     Route: 048
     Dates: start: 20050813, end: 20060613

REACTIONS (2)
  - ANASTOMOTIC ULCER HAEMORRHAGE [None]
  - OESOPHAGEAL ULCER [None]
